FAERS Safety Report 10728295 (Version 1)
Quarter: 2015Q1

REPORT INFORMATION
  Report Type: Spontaneous
  Country: US (occurrence: US)
  Receive Date: 20150121
  Receipt Date: 20150121
  Transmission Date: 20150721
  Serious: Yes (Death, Disabling, Other)
  Sender: FDA-Public Use
  Company Number: PHHY2015US005682

PATIENT
  Age: 74 Year
  Sex: Male

DRUGS (4)
  1. PREDNISONE. [Suspect]
     Active Substance: PREDNISONE
     Indication: METASTASES TO CENTRAL NERVOUS SYSTEM
  2. PREDNISONE. [Suspect]
     Active Substance: PREDNISONE
     Indication: RENAL CELL CARCINOMA
     Dosage: 20 MG, QD
     Route: 065
     Dates: start: 201108
  3. PAZOPANIB [Suspect]
     Active Substance: PAZOPANIB
     Indication: RENAL CELL CARCINOMA
     Dosage: 1 G, QD
     Route: 065
     Dates: start: 201108
  4. PAZOPANIB [Suspect]
     Active Substance: PAZOPANIB
     Indication: METASTASES TO CENTRAL NERVOUS SYSTEM
     Dosage: 800 MG, QD
     Route: 065
     Dates: start: 201111

REACTIONS (3)
  - Death [Fatal]
  - Renal cell carcinoma [Unknown]
  - Metastases to central nervous system [Unknown]

NARRATIVE: CASE EVENT DATE: 201203
